FAERS Safety Report 14971204 (Version 5)
Quarter: 2025Q3

REPORT INFORMATION
  Report Type: Spontaneous
  Country: EU (occurrence: EU)
  Receive Date: 20180604
  Receipt Date: 20250925
  Transmission Date: 20251021
  Serious: Yes (Other)
  Sender: MYLAN
  Company Number: EU-ADIENNEP-2018AD000123

PATIENT
  Age: 5 Year
  Sex: Male

DRUGS (32)
  1. MYCOPHENOLATE MOFETIL [Suspect]
     Active Substance: MYCOPHENOLATE MOFETIL
     Indication: Prophylaxis against graft versus host disease
  2. MYCOPHENOLATE MOFETIL [Suspect]
     Active Substance: MYCOPHENOLATE MOFETIL
     Route: 065
  3. MYCOPHENOLATE MOFETIL [Suspect]
     Active Substance: MYCOPHENOLATE MOFETIL
     Route: 065
  4. MYCOPHENOLATE MOFETIL [Suspect]
     Active Substance: MYCOPHENOLATE MOFETIL
  5. FLUDARABINE [Suspect]
     Active Substance: FLUDARABINE PHOSPHATE
     Indication: Bone marrow conditioning regimen
     Dosage: 40 MILLIGRAM/SQ. METER, QD
  6. FLUDARABINE [Suspect]
     Active Substance: FLUDARABINE PHOSPHATE
     Dosage: 40 MILLIGRAM/SQ. METER, QD
     Route: 065
  7. FLUDARABINE [Suspect]
     Active Substance: FLUDARABINE PHOSPHATE
     Dosage: 40 MILLIGRAM/SQ. METER, QD
     Route: 065
  8. FLUDARABINE [Suspect]
     Active Substance: FLUDARABINE PHOSPHATE
     Dosage: 40 MILLIGRAM/SQ. METER, QD
  9. CYCLOSPORINE [Suspect]
     Active Substance: CYCLOSPORINE
     Indication: Prophylaxis against graft versus host disease
  10. CYCLOSPORINE [Suspect]
     Active Substance: CYCLOSPORINE
  11. CYCLOSPORINE [Suspect]
     Active Substance: CYCLOSPORINE
     Route: 065
  12. CYCLOSPORINE [Suspect]
     Active Substance: CYCLOSPORINE
     Route: 065
  13. CYCLOSPORINE [Suspect]
     Active Substance: CYCLOSPORINE
  14. CYCLOSPORINE [Suspect]
     Active Substance: CYCLOSPORINE
  15. CYCLOSPORINE [Suspect]
     Active Substance: CYCLOSPORINE
     Route: 065
  16. CYCLOSPORINE [Suspect]
     Active Substance: CYCLOSPORINE
     Route: 065
  17. RITUXIMAB [Suspect]
     Active Substance: RITUXIMAB
     Indication: Prophylaxis
     Dosage: 200 MILLIGRAM/SQ. METER, QD
  18. RITUXIMAB [Suspect]
     Active Substance: RITUXIMAB
     Dosage: 200 MILLIGRAM/SQ. METER, QD
     Route: 065
  19. RITUXIMAB [Suspect]
     Active Substance: RITUXIMAB
     Dosage: 200 MILLIGRAM/SQ. METER, QD
     Route: 065
  20. RITUXIMAB [Suspect]
     Active Substance: RITUXIMAB
     Dosage: 200 MILLIGRAM/SQ. METER, QD
  21. THIOTEPA [Suspect]
     Active Substance: THIOTEPA
     Indication: Bone marrow conditioning regimen
     Dosage: 8 MILLIGRAM/KILOGRAM, QD
  22. THIOTEPA [Suspect]
     Active Substance: THIOTEPA
     Dosage: 8 MILLIGRAM/KILOGRAM, QD
     Route: 065
  23. THIOTEPA [Suspect]
     Active Substance: THIOTEPA
     Dosage: 8 MILLIGRAM/KILOGRAM, QD
     Route: 065
  24. THIOTEPA [Suspect]
     Active Substance: THIOTEPA
     Dosage: 8 MILLIGRAM/KILOGRAM, QD
  25. LAPINE T-LYMPHOCYTE IMMUNE GLOBULIN [Suspect]
     Active Substance: LAPINE T-LYMPHOCYTE IMMUNE GLOBULIN
     Indication: Prophylaxis against graft versus host disease
  26. LAPINE T-LYMPHOCYTE IMMUNE GLOBULIN [Suspect]
     Active Substance: LAPINE T-LYMPHOCYTE IMMUNE GLOBULIN
     Route: 065
  27. LAPINE T-LYMPHOCYTE IMMUNE GLOBULIN [Suspect]
     Active Substance: LAPINE T-LYMPHOCYTE IMMUNE GLOBULIN
     Route: 065
  28. LAPINE T-LYMPHOCYTE IMMUNE GLOBULIN [Suspect]
     Active Substance: LAPINE T-LYMPHOCYTE IMMUNE GLOBULIN
  29. TREOSULFAN [Suspect]
     Active Substance: TREOSULFAN
     Indication: Bone marrow conditioning regimen
  30. TREOSULFAN [Suspect]
     Active Substance: TREOSULFAN
     Route: 065
  31. TREOSULFAN [Suspect]
     Active Substance: TREOSULFAN
     Route: 065
  32. TREOSULFAN [Suspect]
     Active Substance: TREOSULFAN

REACTIONS (5)
  - Acute graft versus host disease [Recovered/Resolved]
  - Mucosal inflammation [Recovered/Resolved]
  - Cytomegalovirus infection reactivation [Recovered/Resolved]
  - Chronic graft versus host disease [Unknown]
  - Acute graft versus host disease in intestine [Recovered/Resolved]
